FAERS Safety Report 4751628-0 (Version None)
Quarter: 2005Q3

REPORT INFORMATION
  Report Type: 
  Country: None (occurrence: None)
  Receive Date: 20050822
  Receipt Date: 20050808
  Transmission Date: 20060218
  Serious: Yes (Hospitalization)
  Sender: FDA-Public Use
  Company Number: HQWYE769708AUG05

PATIENT
  Age: 70 Year
  Sex: Male

DRUGS (1)
  1. TAZONAM (PIPERACILLIN/TAZOBACTAM, INJECTION) [Suspect]
     Dosage: 4.5 G 3X PER 1 DAY

REACTIONS (2)
  - FISTULA [None]
  - POSTOPERATIVE INFECTION [None]
